FAERS Safety Report 5147061-2 (Version None)
Quarter: 2006Q4

REPORT INFORMATION
  Report Type: 
  Country: None (occurrence: None)
  Receive Date: 20061103
  Receipt Date: 20061024
  Transmission Date: 20070319
  Serious: Yes (Other)
  Sender: FDA-Public Use
  Company Number: 2006129768

PATIENT
  Age: 37 Year
  Sex: Female

DRUGS (5)
  1. ZIPRASIDONE HCL [Suspect]
     Indication: PANIC REACTION
     Dosage: 40 MG (40 MG, 1 IN 1 D), ORAL
     Route: 048
     Dates: start: 20060629, end: 20060101
  2. ZIPRASIDONE HCL [Suspect]
     Indication: PERSONALITY DISORDER
     Dosage: 40 MG (40 MG, 1 IN 1 D), ORAL
     Route: 048
     Dates: start: 20060629, end: 20060101
  3. PROZAC [Suspect]
     Indication: PANIC REACTION
     Dosage: 60 MG (1 IN 1 D), ORAL
     Route: 048
     Dates: start: 19940101, end: 20060101
  4. PROZAC [Suspect]
     Indication: PERSONALITY DISORDER
     Dosage: 60 MG (1 IN 1 D), ORAL
     Route: 048
     Dates: start: 19940101, end: 20060101
  5. ALPRAZOLAM [Concomitant]

REACTIONS (3)
  - DRUG INTERACTION [None]
  - DYSARTHRIA [None]
  - SEROTONIN SYNDROME [None]
